FAERS Safety Report 18095919 (Version 2)
Quarter: 2020Q3

REPORT INFORMATION
  Report Type: Spontaneous
  Country: ES (occurrence: ES)
  Receive Date: 20200730
  Receipt Date: 20200805
  Transmission Date: 20201103
  Serious: No
  Sender: FDA-Public Use
  Company Number: ES-ALLERGAN-2027774US

PATIENT
  Sex: Female

DRUGS (2)
  1. OZURDEX [Suspect]
     Active Substance: DEXAMETHASONE
     Indication: MACULAR OEDEMA
  2. OZURDEX [Suspect]
     Active Substance: DEXAMETHASONE
     Indication: RETINAL VEIN OCCLUSION
     Dosage: 0.7 MG, SINGLE
     Route: 031

REACTIONS (3)
  - Vitreous floaters [Unknown]
  - Vitreous adhesions [Recovered/Resolved]
  - Device issue [Unknown]
